FAERS Safety Report 7061723-1 (Version None)
Quarter: 2010Q4

REPORT INFORMATION
  Report Type: 
  Country: None (occurrence: None)
  Receive Date: 20101026
  Receipt Date: 20101019
  Transmission Date: 20110411
  Serious: Yes (Disabling, Other)
  Sender: FDA-Public Use
  Company Number: PT-ROCHE-734367

PATIENT
  Sex: Female
  Weight: 62 kg

DRUGS (2)
  1. BONIVA [Suspect]
     Indication: OSTEOPOROSIS
     Route: 048
     Dates: start: 20081001, end: 20090201
  2. CRESTOR [Concomitant]

REACTIONS (3)
  - INFLUENZA [None]
  - NAUSEA [None]
  - NEPHROLITHIASIS [None]
